FAERS Safety Report 6771712-X (Version None)
Quarter: 2010Q2

REPORT INFORMATION
  Report Type: 
  Country: None (occurrence: None)
  Receive Date: 20100616
  Receipt Date: 20090728
  Transmission Date: 20101027
  Serious: No
  Sender: FDA-Public Use
  Company Number: US-ASTRAZENECA-2009SE05824

PATIENT
  Sex: Female
  Weight: 59.9 kg

DRUGS (2)
  1. ATACAND [Suspect]
     Route: 048
  2. ZOCOR [Concomitant]

REACTIONS (3)
  - DIZZINESS [None]
  - HEADACHE [None]
  - HYPOAESTHESIA [None]
